FAERS Safety Report 5816586-6 (Version None)
Quarter: 2008Q3

REPORT INFORMATION
  Report Type: 
  Country: None (occurrence: None)
  Receive Date: 20080721
  Receipt Date: 20080709
  Transmission Date: 20090109
  Serious: Yes (Other)
  Sender: FDA-Public Use
  Company Number: CN-ROCHE-575767

PATIENT
  Age: 65 Year
  Sex: Male

DRUGS (2)
  1. CEFTRIAXONE SODIUM [Suspect]
     Indication: URINARY TRACT INFECTION
     Dosage: GIVEN WITH 0.9% SODIUM CHLORIDE 250ML. ROUTE: I.V. GTT.
     Route: 042
  2. WINE [Interacting]
     Indication: DRUG USE FOR UNKNOWN INDICATION
     Route: 048

REACTIONS (2)
  - ALCOHOL INTOLERANCE [None]
  - DRUG INTERACTION [None]
